FAERS Safety Report 23818026 (Version 1)
Quarter: 2024Q2

REPORT INFORMATION
  Report Type: Spontaneous
  Country: US (occurrence: US)
  Receive Date: 20240506
  Receipt Date: 20240506
  Transmission Date: 20240716
  Serious: No
  Sender: FDA-Public Use
  Company Number: US-ELI_LILLY_AND_COMPANY-US202405001597

PATIENT
  Sex: Male

DRUGS (3)
  1. OMVOH [Suspect]
     Active Substance: MIRIKIZUMAB-MRKZ
     Indication: Colitis ulcerative
     Dosage: 300 MG, UNKNOWN
     Route: 065
     Dates: start: 20240306
  2. OMVOH [Suspect]
     Active Substance: MIRIKIZUMAB-MRKZ
     Dosage: 300 MG, UNKNOWN
     Route: 065
     Dates: start: 20240403
  3. OMVOH [Suspect]
     Active Substance: MIRIKIZUMAB-MRKZ
     Dosage: 300 MG, UNKNOWN
     Route: 065
     Dates: start: 20240501

REACTIONS (1)
  - Colitis ulcerative [Recovering/Resolving]
